FAERS Safety Report 9443594 (Version 1)
Quarter: 2013Q3

REPORT INFORMATION
  Report Type: Report from Study
  Country: US (occurrence: US)
  Receive Date: 20130806
  Receipt Date: 20130806
  Transmission Date: 20140515
  Serious: Yes (Death, Other)
  Sender: FDA-Public Use
  Company Number: PHHO2011US020023

PATIENT
  Age: 74 Year
  Sex: Female
  Weight: 63 kg

DRUGS (12)
  1. GLEEVEC [Suspect]
     Indication: GASTROINTESTINAL STROMAL TUMOUR
     Dosage: 600 MG, QD
     Route: 048
     Dates: start: 20001016, end: 20120413
  2. WELLBUTRIN [Concomitant]
     Indication: DEPRESSION
     Dosage: 100 MG, TID
     Route: 048
     Dates: start: 20060227
  3. METOCLOPRAMIDE [Concomitant]
     Indication: REFLUX GASTRITIS
     Dosage: 5 MG/H, QD
     Route: 048
     Dates: start: 20060227
  4. ESOMEPRAZOLE [Concomitant]
     Indication: REFLUX GASTRITIS
     Dosage: 40 MG, BID
     Route: 048
     Dates: start: 20060227
  5. SUMATRIPTAN [Concomitant]
     Indication: MIGRAINE
     Dosage: 50 MG, PRN
     Route: 048
     Dates: start: 20021209
  6. AMITRIPTYLINE [Concomitant]
     Indication: DEPRESSION
     Dosage: 75 MG, Q5H
     Route: 048
     Dates: start: 20021209
  7. TRIAMTERENE AND HYDROCHLOROTHIAZID [Concomitant]
     Indication: HYPERTENSION
     Dosage: 1 DF (37.5/26) QD
     Route: 048
     Dates: start: 20090325
  8. NADOLOL [Concomitant]
     Indication: HYPERTENSION
     Dosage: 20 MG, QD
     Route: 048
     Dates: start: 20071017
  9. SALBUTAMOL W/IPRATROPIUM [Concomitant]
     Indication: ASTHMA
     Dosage: 2 DF, QD
     Dates: start: 20090325
  10. BABY ASPIRIN [Concomitant]
     Indication: HYPERTENSION
     Dosage: 25 MG, QD
     Route: 048
     Dates: start: 20091018
  11. DARBEPOETIN ALFA [Concomitant]
     Indication: ANAEMIA
     Dosage: 200 UG, QW2
     Route: 058
     Dates: start: 20051208
  12. RISEDRONATE SODIUM [Concomitant]
     Indication: OSTEOPOROSIS
     Dosage: 1 DF, UNK
     Route: 048
     Dates: start: 20080911

REACTIONS (3)
  - Hepatitis acute [Fatal]
  - Renal cell carcinoma [Recovered/Resolved with Sequelae]
  - Second primary malignancy [Recovered/Resolved with Sequelae]
